FAERS Safety Report 9799629 (Version 1)
Quarter: 2014Q1

REPORT INFORMATION
  Report Type: Spontaneous
  Country: US (occurrence: US)
  Receive Date: 20140106
  Receipt Date: 20140106
  Transmission Date: 20141002
  Serious: No
  Sender: FDA-Public Use
  Company Number: US-GILEAD-2010-0031833

PATIENT
  Age: 70 Year
  Sex: Male

DRUGS (11)
  1. LETAIRIS [Suspect]
     Indication: PULMONARY ARTERIAL HYPERTENSION
  2. REVATIO [Concomitant]
  3. SIMVASTATIN [Concomitant]
  4. VENTOLIN INHALER [Concomitant]
  5. ADVAIR DISKUS [Concomitant]
  6. SPIRIVA [Concomitant]
  7. XOPENEX [Concomitant]
  8. ASA [Concomitant]
  9. AMBIEN [Concomitant]
  10. CALCIUM [Concomitant]
  11. FISH OIL [Concomitant]

REACTIONS (1)
  - Nasal congestion [Not Recovered/Not Resolved]
